FAERS Safety Report 24729528 (Version 1)
Quarter: 2024Q4

REPORT INFORMATION
  Report Type: Spontaneous
  Country: US (occurrence: US)
  Receive Date: 20241213
  Receipt Date: 20241213
  Transmission Date: 20250115
  Serious: No
  Sender: CHATTEM
  Company Number: US-OPELLA-2024OHG040635

PATIENT
  Age: 12 Year
  Sex: Female

DRUGS (6)
  1. DIPHENHYDRAMINE [Suspect]
     Active Substance: DIPHENHYDRAMINE
     Indication: Premedication
  2. HYDROCORTISONE [Suspect]
     Active Substance: HYDROCORTISONE
     Indication: Premedication
  3. FEXOFENADINE [Suspect]
     Active Substance: FEXOFENADINE HYDROCHLORIDE
     Indication: Urticaria cholinergic
  4. ACETAMINOPHEN [Concomitant]
     Active Substance: ACETAMINOPHEN
     Indication: Premedication
  5. MONTELUKAST [Concomitant]
     Active Substance: MONTELUKAST
     Indication: Urticaria cholinergic
  6. Topical Mometasone [Concomitant]
     Indication: Urticaria cholinergic
     Route: 061

REACTIONS (2)
  - Off label use [Unknown]
  - No adverse event [Unknown]
